FAERS Safety Report 8416309-0 (Version None)
Quarter: 2012Q2

REPORT INFORMATION
  Report Type: 
  Country: None (occurrence: None)
  Receive Date: 20120606
  Receipt Date: 20120411
  Transmission Date: 20120825
  Serious: Yes (Hospitalization)
  Sender: FDA-Public Use
  Company Number: US-ROCHE-1075512

PATIENT
  Age: 59 Year
  Sex: Male
  Weight: 94.9 kg

DRUGS (4)
  1. PREDNISONE TAB [Suspect]
     Indication: PROSTATE CANCER
     Dosage: LAST DOSE ON 05-MAR-2012
     Route: 048
     Dates: start: 20100830
  2. AVASTIN [Suspect]
     Indication: PROSTATE CANCER
     Dosage: OVER 30-90 MINUTES ON DAY 1, LAST DOSE ON 13-FEB-2012
     Route: 042
     Dates: start: 20100830
  3. LENALIDOMIDE [Suspect]
     Indication: PROSTATE CANCER
     Dosage: QD ON DAYS 1-14, LAST DOSE ON 26-FEB-2012
     Route: 048
     Dates: start: 20100830
  4. DOCETAXEL [Suspect]
     Indication: PROSTATE CANCER
     Dosage: OVER 60 MINUTES ON DAY 1, LAST DOSE ON 13-FEB-2012
     Route: 048
     Dates: start: 20100830

REACTIONS (2)
  - HAEMATEMESIS [None]
  - HAEMOBILIA [None]
